FAERS Safety Report 13211228 (Version 3)
Quarter: 2018Q4

REPORT INFORMATION
  Report Type: Spontaneous
  Country: US (occurrence: US)
  Receive Date: 20170210
  Receipt Date: 20181023
  Transmission Date: 20190204
  Serious: Yes (Hospitalization)
  Sender: FDA-Public Use
  Company Number: US-PFIZER INC-2017060792

PATIENT
  Age: 62 Year
  Sex: Male
  Weight: 93 kg

DRUGS (4)
  1. VIAGRA [Suspect]
     Active Substance: SILDENAFIL CITRATE
     Indication: ERECTILE DYSFUNCTION
     Dosage: (50 ONCE)
     Dates: start: 201203
  2. VIAGRA [Suspect]
     Active Substance: SILDENAFIL CITRATE
     Dosage: 25 MG (ONE-HALF PILL), UNK
     Dates: start: 2015
  3. KRILL OIL [FISH OIL] [Concomitant]
     Indication: SUPPLEMENTATION THERAPY
     Dosage: 1000 MG (TWO 500 MG), DAILY
  4. VIAGRA [Suspect]
     Active Substance: SILDENAFIL CITRATE
     Dosage: 50 MG, AS NEEDED
     Route: 048

REACTIONS (8)
  - Viral infection [Unknown]
  - Product lot number issue [Unknown]
  - Expired product administered [Unknown]
  - Heart rate increased [Not Recovered/Not Resolved]
  - Malaise [Unknown]
  - Drug ineffective [Not Recovered/Not Resolved]
  - Drug tolerance [Unknown]
  - Libido increased [Recovered/Resolved]

NARRATIVE: CASE EVENT DATE: 20161216
